FAERS Safety Report 9585826 (Version 1)
Quarter: 2013Q4

REPORT INFORMATION
  Report Type: Spontaneous
  Country: US (occurrence: None)
  Receive Date: 20131001
  Receipt Date: 20131001
  Transmission Date: 20140711
  Serious: Yes (Other)
  Sender: FDA-Public Use
  Company Number: 20130507

PATIENT
  Age: 55 Year
  Sex: Female

DRUGS (7)
  1. VENOFER [Suspect]
     Indication: IRON DEFICIENCY ANAEMIA
     Route: 042
  2. COREG (CARVEDILOL) [Concomitant]
  3. LASIX (FUROSEMIDE) [Concomitant]
  4. NORVASC (AMLODIPINE BESYLATE) [Concomitant]
  5. VITAMINS [Concomitant]
  6. CALCITRIOL [Concomitant]
  7. LEVOTHYROXINE [Concomitant]

REACTIONS (5)
  - Blood pressure increased [None]
  - Dialysis [None]
  - Diarrhoea [None]
  - Diabetes mellitus inadequate control [None]
  - Eye haemorrhage [None]
